FAERS Safety Report 14448293 (Version 1)
Quarter: 2018Q1

REPORT INFORMATION
  Report Type: Spontaneous
  Country: US (occurrence: US)
  Receive Date: 20180126
  Receipt Date: 20180126
  Transmission Date: 20180509
  Serious: No
  Sender: FDA-Public Use
  Company Number: None

PATIENT
  Age: 62 Year
  Sex: Female

DRUGS (1)
  1. IBRANCE [Suspect]
     Active Substance: PALBOCICLIB
     Indication: BREAST NEOPLASM
     Dosage: ONE CAPSULE DAILY FOR 21 DAYS OF A 28 DAY CYCLE BY MOUTH
     Route: 048
     Dates: start: 20171228

REACTIONS (4)
  - Hallucination [None]
  - Confusional state [None]
  - Constipation [None]
  - Hypoacusis [None]

NARRATIVE: CASE EVENT DATE: 20180125
